FAERS Safety Report 21620522 (Version 1)
Quarter: 2022Q4

REPORT INFORMATION
  Report Type: Spontaneous
  Country: DE (occurrence: DE)
  Receive Date: 20221121
  Receipt Date: 20221121
  Transmission Date: 20230113
  Serious: Yes (Hospitalization)
  Sender: FDA-Public Use
  Company Number: None

PATIENT
  Age: 66 Year
  Sex: Male
  Weight: 80 kg

DRUGS (13)
  1. CISPLATIN [Suspect]
     Active Substance: CISPLATIN
     Indication: Product used for unknown indication
     Dosage: 60 MG/QM, ACCORDING TO THE SCHEME
  2. ETOPOSIDE [Suspect]
     Active Substance: ETOPOSIDE
     Indication: Product used for unknown indication
     Dosage: 120 MG/QM, ACCORDING TO SCHEME
  3. CANDESARTAN [Concomitant]
     Active Substance: CANDESARTAN
     Dosage: 16 MG, 1-0-1-0
  4. NIFEDIPINE [Concomitant]
     Active Substance: NIFEDIPINE
     Dosage: 10 MG, AS REQUIRED
  5. ALBUTEROL\IPRATROPIUM BROMIDE [Concomitant]
     Active Substance: ALBUTEROL\IPRATROPIUM BROMIDE
     Dosage: 0.5/2.5 MG, 1-1-1-1
  6. AMLODIPINE [Concomitant]
     Active Substance: AMLODIPINE BESYLATE
     Dosage: 5 MG, 1-0-1-0
  7. BISOPROLOL [Concomitant]
     Active Substance: BISOPROLOL
     Dosage: 2.5 MG, 1-0-1-0
  8. METAMIZOLE [Concomitant]
     Active Substance: METAMIZOLE
     Dosage: 750 MG, AS REQUIRED, DROPS
  9. GLYCOPYRRONIUM [Concomitant]
     Active Substance: GLYCOPYRRONIUM
     Dosage: 50 MCG, 1-0-0-0, CAPSULES FOR INHALATION
  10. FORMOTEROL [Concomitant]
     Active Substance: FORMOTEROL
     Dosage: 12 MCG, 1-0-1-0
     Route: 055
  11. ASPIRIN [Concomitant]
     Active Substance: ASPIRIN
     Dosage: 100 MG, 0-1-0-0
  12. PANTOPRAZOLE [Concomitant]
     Active Substance: PANTOPRAZOLE
     Dosage: 40 MG, 1-0-0-0
  13. ENOXAPARIN [Concomitant]
     Active Substance: ENOXAPARIN
     Dosage: 40 MG, 0-0-1-0, PRE-FILLED SYRINGES

REACTIONS (7)
  - Dysphagia [Unknown]
  - Cough [Unknown]
  - Dizziness [Unknown]
  - General physical health deterioration [Unknown]
  - Acute kidney injury [Unknown]
  - Dehydration [Unknown]
  - Fatigue [Unknown]
